FAERS Safety Report 6577220-3 (Version None)
Quarter: 2010Q1

REPORT INFORMATION
  Report Type: 
  Country: None (occurrence: None)
  Receive Date: 20100210
  Receipt Date: 20100202
  Transmission Date: 20100710
  Serious: No
  Sender: FDA-Public Use
  Company Number: US-B.I. PHARMACEUTICALS,INC./RIDGEFIELD-2010-BP-01304BP

PATIENT
  Age: 82 Year
  Sex: Female

DRUGS (5)
  1. CATAPRES [Suspect]
     Indication: HYPERTENSION
     Dosage: 0.1 MG
     Route: 048
     Dates: start: 20100101
  2. PRAVACHOL [Concomitant]
     Indication: BLOOD CHOLESTEROL INCREASED
  3. SYNTHROID [Concomitant]
     Indication: THYROIDECTOMY
  4. TECHTURNA [Concomitant]
     Indication: HYPERTENSION
  5. CARDIZEM [Concomitant]
     Indication: HYPERTENSION

REACTIONS (1)
  - BURNING SENSATION [None]
